FAERS Safety Report 11340150 (Version 2)
Quarter: 2015Q3

REPORT INFORMATION
  Report Type: Spontaneous
  Country: US (occurrence: US)
  Receive Date: 20150805
  Receipt Date: 20150928
  Transmission Date: 20151125
  Serious: Yes (Hospitalization, Disabling, Other)
  Sender: FDA-Public Use
  Company Number: US-PERRIGO-15US007890

PATIENT
  Age: 5 Year
  Sex: Female

DRUGS (21)
  1. OFIRMEV [Concomitant]
     Active Substance: ACETAMINOPHEN
     Indication: PRODUCT USED FOR UNKNOWN INDICATION
     Dosage: 300 MG, Q6H PRN
     Route: 042
     Dates: start: 20141027, end: 20141028
  2. ACETAMINOPHEN CHILD CHERRY 32 MG/ML 175 [Suspect]
     Active Substance: ACETAMINOPHEN
     Indication: OROPHARYNGEAL PAIN
     Dosage: 211.204 MG, SINGLE
     Route: 048
     Dates: start: 20141024, end: 20141024
  3. ACETAMINOPHEN CHILD CHERRY 32 MG/ML 175 [Suspect]
     Active Substance: ACETAMINOPHEN
     Indication: CONJUNCTIVITIS VIRAL
     Dosage: 300 MG, Q6H PRN
     Route: 048
     Dates: start: 201412, end: 201503
  4. ACETAMINOPHEN. [Suspect]
     Active Substance: ACETAMINOPHEN
     Indication: PYREXIA
     Dosage: 320 MG, SINGLE
     Route: 048
     Dates: start: 20141007, end: 20141007
  5. ACETAMINOPHEN. [Suspect]
     Active Substance: ACETAMINOPHEN
     Indication: CONJUNCTIVITIS VIRAL
  6. ACETAMINOPHEN. [Suspect]
     Active Substance: ACETAMINOPHEN
     Indication: CONJUNCTIVITIS
  7. KEFLEX [Concomitant]
     Active Substance: CEPHALEXIN
     Indication: SKIN INFECTION
     Dosage: 255 MG, Q6H
     Route: 048
     Dates: start: 20141025, end: 20141027
  8. VANCOMYCIN [Concomitant]
     Active Substance: VANCOMYCIN
     Indication: STAPHYLOCOCCAL INFECTION
     Dosage: UNKNOWN, UNKNOWN
     Route: 065
     Dates: start: 20141027
  9. ACETAMINOPHEN CHILD CHERRY 32 MG/ML 175 [Suspect]
     Active Substance: ACETAMINOPHEN
     Indication: VIRAL RASH
     Dosage: UNKNOWN, UNKNOWN
     Route: 048
     Dates: start: 20141027, end: 20141104
  10. ACETAMINOPHEN CHILD CHERRY 32 MG/ML 175 [Suspect]
     Active Substance: ACETAMINOPHEN
     Indication: CONJUNCTIVITIS
  11. ACETAMINOPHEN CHILD CHERRY 32 MG/ML 175 [Suspect]
     Active Substance: ACETAMINOPHEN
     Indication: PAIN
  12. ACETAMINOPHEN. [Suspect]
     Active Substance: ACETAMINOPHEN
     Indication: OROPHARYNGEAL PAIN
     Dosage: 211.204 MG, SINGLE
     Route: 048
     Dates: start: 20141024, end: 20141024
  13. CLINDAMYCIN [Concomitant]
     Active Substance: CLINDAMYCIN\CLINDAMYCIN PHOSPHATE
     Indication: STAPHYLOCOCCAL INFECTION
     Dosage: UNKNOWN, UNKNOWN
     Route: 065
     Dates: start: 20141027
  14. ACETAMINOPHEN CHILD CHERRY 32 MG/ML 175 [Suspect]
     Active Substance: ACETAMINOPHEN
     Indication: PYREXIA
     Dosage: 320 MG, SINGLE
     Route: 048
     Dates: start: 20141007, end: 20141007
  15. ACETAMINOPHEN. [Suspect]
     Active Substance: ACETAMINOPHEN
     Indication: VIRAL INFECTION
     Dosage: 325 MG, SINGLE
     Route: 048
     Dates: start: 20141025, end: 20141025
  16. ACETAMINOPHEN. [Suspect]
     Active Substance: ACETAMINOPHEN
     Indication: VIRAL RASH
     Dosage: UNKNOWN, UNKNOWN
     Route: 048
     Dates: start: 20141027, end: 20141104
  17. ACETAMINOPHEN. [Suspect]
     Active Substance: ACETAMINOPHEN
     Indication: VARICELLA
  18. ACETAMINOPHEN CHILD CHERRY 32 MG/ML 175 [Suspect]
     Active Substance: ACETAMINOPHEN
     Indication: VIRAL INFECTION
     Dosage: 325 MG, SINGLE
     Route: 048
     Dates: start: 20141025, end: 20141025
  19. ACETAMINOPHEN CHILD CHERRY 32 MG/ML 175 [Suspect]
     Active Substance: ACETAMINOPHEN
     Indication: VARICELLA
  20. ACETAMINOPHEN CHILD CHERRY 32 MG/ML 175 [Suspect]
     Active Substance: ACETAMINOPHEN
     Indication: ABDOMINAL PAIN UPPER
     Dosage: UNK, SINGLE
     Route: 048
     Dates: start: 20141024, end: 20141024
  21. ACETAMINOPHEN. [Suspect]
     Active Substance: ACETAMINOPHEN
     Indication: ABDOMINAL PAIN UPPER
     Dosage: UNK, SINGLE
     Route: 048
     Dates: start: 20141024, end: 20141024

REACTIONS (17)
  - Shock [Recovered/Resolved with Sequelae]
  - Respiratory failure [Recovered/Resolved with Sequelae]
  - Scar [Not Recovered/Not Resolved]
  - Cardiac disorder [Not Recovered/Not Resolved]
  - Bacterial sepsis [Recovered/Resolved with Sequelae]
  - Purpura fulminans [Recovered/Resolved with Sequelae]
  - Asthenia [Not Recovered/Not Resolved]
  - Tracheal injury [Not Recovered/Not Resolved]
  - Skin necrosis [Recovered/Resolved with Sequelae]
  - Gastrointestinal injury [Not Recovered/Not Resolved]
  - Toxic epidermal necrolysis [Recovered/Resolved with Sequelae]
  - Vocal cord disorder [Not Recovered/Not Resolved]
  - Post-traumatic stress disorder [Not Recovered/Not Resolved]
  - Bronchial injury [Not Recovered/Not Resolved]
  - Urogenital disorder [Not Recovered/Not Resolved]
  - Eye injury [Not Recovered/Not Resolved]
  - Extremity necrosis [Recovered/Resolved with Sequelae]

NARRATIVE: CASE EVENT DATE: 201410
